FAERS Safety Report 9714322 (Version 1)
Quarter: 2013Q4

REPORT INFORMATION
  Report Type: Spontaneous
  Country: US (occurrence: US)
  Receive Date: 20131126
  Receipt Date: 20131126
  Transmission Date: 20140711
  Serious: No
  Sender: FDA-Public Use
  Company Number: US-B.I. PHARMACEUTICALS,INC./RIDGEFIELD-2013-BI-37571BP

PATIENT
  Sex: Female
  Weight: 45 kg

DRUGS (5)
  1. SPIRIVA [Suspect]
     Indication: CHRONIC OBSTRUCTIVE PULMONARY DISEASE
     Dosage: 18 MCG
     Route: 055
     Dates: start: 2004
  2. SYMBICORT [Concomitant]
     Indication: CHRONIC OBSTRUCTIVE PULMONARY DISEASE
     Dosage: 4 PUF
     Route: 055
     Dates: start: 2005
  3. CLONAZEPAM [Concomitant]
     Indication: INSOMNIA
     Dosage: 0.5 MG
     Route: 048
     Dates: start: 2003
  4. BESYLATE [Concomitant]
     Indication: HYPERTENSION
     Dosage: 2.5 MG
     Route: 048
     Dates: start: 2003
  5. LIPTOR [Concomitant]
     Indication: BLOOD CHOLESTEROL INCREASED
     Dosage: 10 MG
     Route: 048
     Dates: start: 2001

REACTIONS (1)
  - Dyspnoea exertional [Not Recovered/Not Resolved]
